FAERS Safety Report 22088272 (Version 1)
Quarter: 2023Q1

REPORT INFORMATION
  Report Type: Spontaneous
  Country: FR (occurrence: FR)
  Receive Date: 20230313
  Receipt Date: 20230313
  Transmission Date: 20230417
  Serious: Yes (Life-Threatening, Hospitalization, Other)
  Sender: FDA-Public Use
  Company Number: FR-AstraZeneca-2023A046229

PATIENT
  Age: 70 Year
  Sex: Male
  Weight: 68 kg

DRUGS (20)
  1. CARBOPLATIN [Suspect]
     Active Substance: CARBOPLATIN
     Indication: Non-small cell lung cancer
     Dosage: 755 MILLIGRAM (3 WEEKS)
     Route: 065
     Dates: start: 20221228, end: 20221228
  2. CARBOPLATIN [Suspect]
     Active Substance: CARBOPLATIN
     Dosage: 840 MILLIGRAM ( 3WEEKS)
     Route: 065
     Dates: start: 20230118, end: 20230118
  3. CARBOPLATIN [Suspect]
     Active Substance: CARBOPLATIN
     Dosage: 965 MILLIGRAM (3 WEEKS)
     Route: 065
     Dates: start: 20230208, end: 20230208
  4. PACLITAXEL [Suspect]
     Active Substance: PACLITAXEL
     Indication: Non-small cell lung cancer
     Dosage: 357 MILLIGRAM (3 WEKS)
     Route: 065
     Dates: start: 20230118, end: 20230118
  5. PACLITAXEL [Suspect]
     Active Substance: PACLITAXEL
     Dosage: 357 MILLIGRAM (3 WEEKS)
     Route: 065
     Dates: start: 20230208, end: 20230208
  6. PACLITAXEL [Suspect]
     Active Substance: PACLITAXEL
     Dosage: 357 MILLIGRAM (3 WEEK)
     Route: 065
     Dates: start: 20221228, end: 20221228
  7. DURVALUMAB [Suspect]
     Active Substance: DURVALUMAB
     Indication: Non-small cell lung cancer
     Dosage: 1500 MILLIGRAM ( 3WEEKS)
     Route: 042
     Dates: start: 20230208, end: 20230208
  8. DURVALUMAB [Suspect]
     Active Substance: DURVALUMAB
     Dosage: 1500 MILLIGRAM ( 3WEEKS)
     Route: 042
     Dates: start: 20221228, end: 20221228
  9. DURVALUMAB [Suspect]
     Active Substance: DURVALUMAB
     Dosage: 1500 MILLIGRAM (3 WEEKS)
     Route: 042
     Dates: start: 20230118, end: 20230118
  10. OLECLUMAB [Suspect]
     Active Substance: OLECLUMAB
     Indication: Non-small cell lung cancer
     Dosage: 3000 MILLIGRAM ( 3WEEKS)
     Route: 042
     Dates: start: 20230118, end: 20230118
  11. OLECLUMAB [Suspect]
     Active Substance: OLECLUMAB
     Dosage: 3000 MILLIGRAM (3 WEEKS)
     Route: 042
     Dates: start: 20230208, end: 20230208
  12. OLECLUMAB [Suspect]
     Active Substance: OLECLUMAB
     Dosage: 3000 MILLIGRAM (3 WEEKS)
     Route: 042
     Dates: start: 20221228, end: 20221228
  13. SIMVASTATIN [Concomitant]
     Active Substance: SIMVASTATIN
     Indication: Hypercholesterolaemia
     Dosage: 10 MILLIGRAM, ONCE A DAY
     Route: 048
     Dates: start: 20140916
  14. AMITRIPTYLINE HYDROCHLORIDE [Concomitant]
     Active Substance: AMITRIPTYLINE HYDROCHLORIDE
     Indication: Injury
     Dosage: 50 MILLIGRAM, ONCE A DAY
     Route: 048
     Dates: start: 201308
  15. IMODIUM [Concomitant]
     Active Substance: LOPERAMIDE HYDROCHLORIDE
     Indication: Diarrhoea
     Dosage: 1 MILLIGRAM
     Route: 048
     Dates: start: 20230101
  16. LOSARTAN [Concomitant]
     Active Substance: LOSARTAN
     Indication: Hypertension
     Dosage: 100 MILLIGRAM, ONCE A DAY
     Route: 048
     Dates: start: 20130905
  17. INDOMETHACIN [Concomitant]
     Active Substance: INDOMETHACIN
     Indication: Injury
     Dosage: 25 MILLIGRAM, ONCE A DAY
     Route: 048
     Dates: start: 20130905
  18. AMLODIPINE [Concomitant]
     Active Substance: AMLODIPINE BESYLATE
     Indication: Hypertension
     Dosage: 10 MILLIGRAM, ONCE A DAY
     Route: 048
     Dates: start: 20130905
  19. HYDROCHLOROTHIAZIDE [Concomitant]
     Active Substance: HYDROCHLOROTHIAZIDE
     Indication: Hypertension
     Dosage: 25 MILLIGRAM, ONCE A DAY
     Route: 048
     Dates: start: 20130905
  20. OMEPRAZOLE [Concomitant]
     Active Substance: OMEPRAZOLE
     Indication: Gastrooesophageal reflux disease
     Dosage: 20 MILLIGRAM, ONCE A DAY
     Route: 048
     Dates: start: 2022

REACTIONS (2)
  - Pneumonitis [Not Recovered/Not Resolved]
  - Stress cardiomyopathy [Not Recovered/Not Resolved]

NARRATIVE: CASE EVENT DATE: 20230216
